FAERS Safety Report 5670808-3 (Version None)
Quarter: 2008Q1

REPORT INFORMATION
  Report Type: 
  Country: None (occurrence: None)
  Receive Date: 20080318
  Receipt Date: 20080307
  Transmission Date: 20080703
  Serious: Yes (Disabling)
  Sender: FDA-Public Use
  Company Number: AU-JNJFOC-20080205053

PATIENT
  Age: 16 Year
  Sex: Male
  Weight: 55 kg

DRUGS (1)
  1. SPORANOX [Suspect]
     Indication: PULMONARY MYCOSIS
     Route: 048

REACTIONS (2)
  - BURNING SENSATION [None]
  - NEUROPATHY PERIPHERAL [None]
